FAERS Safety Report 21035052 (Version 1)
Quarter: 2022Q3

REPORT INFORMATION
  Report Type: Spontaneous
  Country: US (occurrence: None)
  Receive Date: 20220701
  Receipt Date: 20220701
  Transmission Date: 20221027
  Serious: No
  Sender: FDA-Public Use
  Company Number: None

PATIENT
  Age: 71 Year
  Sex: Male
  Weight: 113.58 kg

DRUGS (15)
  1. ABIRATERONE [Suspect]
     Active Substance: ABIRATERONE
     Indication: Prostate cancer
     Dosage: 1000MG DAILY ORAL?
     Route: 048
  2. CEFPODOXIME PROXETIL [Concomitant]
     Active Substance: CEFPODOXIME PROXETIL
  3. OXYBUTYNIN [Concomitant]
     Active Substance: OXYBUTYNIN
  4. LUPRON [Concomitant]
     Active Substance: LEUPROLIDE ACETATE
  5. XARELTO [Concomitant]
     Active Substance: RIVAROXABAN
  6. PRILOSEC [Concomitant]
  7. PREDNISONE [Concomitant]
     Active Substance: PREDNISONE
  8. NIFEDIPINE [Concomitant]
     Active Substance: NIFEDIPINE
  9. MEOPROLOL [Concomitant]
  10. LOSARTAN [Concomitant]
     Active Substance: LOSARTAN
  11. LISINOPRIL [Concomitant]
     Active Substance: LISINOPRIL
  12. FUROSEMIDE [Concomitant]
     Active Substance: FUROSEMIDE
  13. CLONIDINE [Suspect]
     Active Substance: CLONIDINE
  14. VITAMIN D3 [Concomitant]
     Active Substance: CHOLECALCIFEROL
  15. MULTIVITAMIN ADULT [Concomitant]

REACTIONS (1)
  - Blood urine present [None]
